FAERS Safety Report 19983191 (Version 1)
Quarter: 2021Q4

REPORT INFORMATION
  Report Type: Other
  Country: GB (occurrence: GB)
  Receive Date: 20211021
  Receipt Date: 20211021
  Transmission Date: 20220303
  Serious: Yes (Disabling, Other)
  Sender: FDA-Public Use
  Company Number: None

PATIENT
  Age: 32 Year
  Sex: Male
  Weight: 60 kg

DRUGS (6)
  1. OMEPRAZOLE [Suspect]
     Active Substance: OMEPRAZOLE
     Indication: Duodenal ulcer
     Route: 048
     Dates: start: 20211001
  2. CO-DYDRAMOL [Concomitant]
     Active Substance: ACETAMINOPHEN\DIHYDROCODEINE
     Dosage: TAKE 1 OR 2 UP TO 4 TIMES/DAY
     Dates: start: 20211004
  3. FEXOFENADINE [Concomitant]
     Active Substance: FEXOFENADINE HYDROCHLORIDE
     Dosage: BEFORE A MEAL
     Dates: start: 20211005
  4. NYSTATIN [Concomitant]
     Active Substance: NYSTATIN
     Dosage: 1 MILLILITER
     Dates: start: 20211005
  5. PREDNISOLONE [Concomitant]
     Active Substance: PREDNISOLONE
     Dosage: TOGETHER AFTER FOOD.
     Dates: start: 20211004
  6. ACETAMINOPHEN\CODEINE PHOSPHATE [Concomitant]
     Active Substance: ACETAMINOPHEN\CODEINE PHOSPHATE
     Dosage: TAKE ONE OR TWO UP TO FOUR TIMES A DAY
     Dates: start: 20211005

REACTIONS (4)
  - Angioedema [Recovering/Resolving]
  - Oropharyngeal swelling [Recovering/Resolving]
  - Mouth ulceration [Recovering/Resolving]
  - Pharyngeal ulceration [Recovering/Resolving]

NARRATIVE: CASE EVENT DATE: 20211003
